FAERS Safety Report 23024575 (Version 2)
Quarter: 2023Q4

REPORT INFORMATION
  Report Type: Spontaneous
  Country: US (occurrence: US)
  Receive Date: 20231004
  Receipt Date: 20231016
  Transmission Date: 20240110
  Serious: No
  Sender: FDA-Public Use
  Company Number: US-SA-SAC20230929000513

PATIENT
  Age: 62 Year
  Sex: Female

DRUGS (4)
  1. DUPIXENT [Suspect]
     Active Substance: DUPILUMAB
     Indication: Dermatitis atopic
     Dosage: 300 MG, QOW
     Route: 058
     Dates: start: 20230719
  2. CLARITIN [Concomitant]
     Active Substance: LORATADINE
  3. OLMESARTAN MEDOXOMIL [Concomitant]
     Active Substance: OLMESARTAN MEDOXOMIL
  4. CYANOCOBALAMIN [Concomitant]
     Active Substance: CYANOCOBALAMIN

REACTIONS (6)
  - Sleep disorder [Unknown]
  - Discomfort [Unknown]
  - Insomnia [Unknown]
  - Eye irritation [Unknown]
  - Rash [Unknown]
  - Drug ineffective [Unknown]
